FAERS Safety Report 6163486-0 (Version None)
Quarter: 2009Q2

REPORT INFORMATION
  Report Type: 
  Country: None (occurrence: None)
  Receive Date: 20090422
  Receipt Date: 20030121
  Transmission Date: 20091009
  Serious: No
  Sender: FDA-Public Use
  Company Number: US-SOLVAY-00203000165

PATIENT
  Age: 70 Year
  Sex: Female

DRUGS (3)
  1. THYROID MEDICATION [Concomitant]
     Indication: HYPOTHYROIDISM
     Dosage: DAILY DOSE: UNK.
     Route: 048
  2. ANDROGEL [Suspect]
     Indication: ACCIDENTAL EXPOSURE
     Dosage: DAILY DOSE: 5 G.
     Route: 062
     Dates: start: 20021001
  3. TYLENOL [Concomitant]
     Indication: ARTHRITIS
     Dosage: DAILY DOSE: UNK.
     Route: 048

REACTIONS (3)
  - DYSMENORRHOEA [None]
  - FEELING ABNORMAL [None]
  - HIRSUTISM [None]
